FAERS Safety Report 8967851 (Version 2)
Quarter: 2012Q4

REPORT INFORMATION
  Report Type: 
  Country: US (occurrence: US)
  Receive Date: 20121217
  Receipt Date: 20121217
  Transmission Date: 20130627
  Serious: No
  Sender: FDA-Public Use
  Company Number: US-PFIZER INC-2012310119

PATIENT
  Age: 77 Year
  Sex: Male
  Weight: 68.03 kg

DRUGS (3)
  1. VIAGRA [Suspect]
     Indication: ERECTILE DYSFUNCTION
     Dosage: 100 mg, as needed
     Route: 048
  2. VIAGRA [Suspect]
     Dosage: two tablets of 100mg, one in the morning and one in the evening
  3. VIAGRA [Suspect]
     Dosage: 4 tablets of 100mg, once

REACTIONS (3)
  - Incorrect dose administered [Unknown]
  - Suspected counterfeit product [Unknown]
  - Drug ineffective [Unknown]
